FAERS Safety Report 14085605 (Version 3)
Quarter: 2018Q1

REPORT INFORMATION
  Report Type: Spontaneous
  Country: DK (occurrence: DK)
  Receive Date: 20171013
  Receipt Date: 20180119
  Transmission Date: 20180508
  Serious: Yes (Hospitalization, Other)
  Sender: FDA-Public Use
  Company Number: DK-ASTELLAS-2017US040540

PATIENT
  Age: 70 Year
  Sex: Male

DRUGS (2)
  1. XTANDI [Suspect]
     Active Substance: ENZALUTAMIDE
     Indication: HORMONE-REFRACTORY PROSTATE CANCER
     Route: 048
     Dates: start: 20170628, end: 20170811
  2. CORODIL                            /00042901/ [Interacting]
     Active Substance: DIPYRIDAMOLE
     Indication: ANGIOTENSIN CONVERTING ENZYME INCREASED
     Route: 065
     Dates: start: 2014, end: 20170811

REACTIONS (2)
  - Drug interaction [Unknown]
  - Anaphylactic reaction [Recovered/Resolved]

NARRATIVE: CASE EVENT DATE: 20170811
